FAERS Safety Report 17218502 (Version 1)
Quarter: 2020Q1

REPORT INFORMATION
  Report Type: Spontaneous
  Country: US (occurrence: US)
  Receive Date: 20191230
  Receipt Date: 20191230
  Transmission Date: 20200409
  Serious: Yes (Life-Threatening)
  Sender: FDA-Public Use
  Company Number: None

PATIENT
  Age: 16 Year
  Sex: Male
  Weight: 119.25 kg

DRUGS (8)
  1. PRIMATENE MIST [Suspect]
     Active Substance: EPINEPHRINE
     Indication: ASTHMA
     Dosage: ?          QUANTITY:2 INHALATION(S);?
     Route: 055
     Dates: start: 20191227, end: 20191227
  2. MULTI VITAMIN [Concomitant]
     Active Substance: VITAMINS
  3. VIT.D [Concomitant]
  4. FISH-OIL [Concomitant]
  5. ALLERGY PILLS [Concomitant]
     Active Substance: UNSPECIFIED INGREDIENT
  6. NEBULIZER [Concomitant]
     Active Substance: DEVICE
  7. VIT.C [Concomitant]
  8. GREENS COMPLEX [Concomitant]

REACTIONS (2)
  - Throat irritation [None]
  - Asthma [None]

NARRATIVE: CASE EVENT DATE: 20191227
